FAERS Safety Report 8520698-6 (Version None)
Quarter: 2012Q3

REPORT INFORMATION
  Report Type: 
  Country: None (occurrence: None)
  Receive Date: 20120709
  Receipt Date: 20120625
  Transmission Date: 20120928
  Serious: Yes (Hospitalization, Other)
  Sender: FDA-Public Use
  Company Number: 2012MA001151

PATIENT
  Sex: Male
  Weight: 74.8435 kg

DRUGS (38)
  1. ASPIRIN [Concomitant]
  2. VITAMIN B-12 [Concomitant]
  3. BRIMONIDINE TARTRATE [Concomitant]
  4. CAPTOPRIL [Concomitant]
  5. CELEBREX [Concomitant]
  6. GALANTAMINE HYDROBROMIDE [Concomitant]
  7. OMEGA [Concomitant]
  8. FORTICAL [Concomitant]
  9. LORAZEPAM [Concomitant]
  10. PREVACID [Concomitant]
  11. ALENDRONATE SODIUM [Concomitant]
  12. ELIGARD [Concomitant]
  13. NEURONTIN [Concomitant]
  14. TEQUIN [Concomitant]
  15. ACIPHEX [Concomitant]
  16. GUAIFENESIN DM [Concomitant]
  17. LORTAB [Concomitant]
  18. METFORMIN HYDROCHLORIDE [Concomitant]
  19. SIMVASTATIN [Concomitant]
  20. TIMOLOL MALEATE [Concomitant]
  21. ACTONEL [Concomitant]
  22. COUMADIN [Concomitant]
  23. DORZOLAMIDE HYDROCHLORIDE AND TIMOLOL MALEATE [Concomitant]
  24. FLUNISOLIDE [Concomitant]
  25. HORMONE THERAPY [Concomitant]
  26. LATANOPROST [Concomitant]
  27. PROTONIX [Concomitant]
  28. CLOPIDOGREL [Concomitant]
  29. LEVAQUIN [Concomitant]
  30. NIFEREX [Concomitant]
  31. TRAVATAN [Concomitant]
  32. METOCLOPRAMIDE [Suspect]
     Indication: GASTROOESOPHAGEAL REFLUX DISEASE
     Dosage: 10 MG;QID, AC + HS;PO
     Route: 048
     Dates: start: 20030625, end: 20040301
  33. OMEPRAZOLE [Concomitant]
  34. SENOKOT [Concomitant]
  35. GLYBURIDE [Concomitant]
  36. NASONEX [Concomitant]
  37. NEXIUM [Concomitant]
  38. PAROXETINE [Concomitant]

REACTIONS (71)
  - BARRETT'S OESOPHAGUS [None]
  - DECREASED APPETITE [None]
  - HYPOMAGNESAEMIA [None]
  - TRIGGER FINGER [None]
  - ORAL DISORDER [None]
  - BRONCHIAL OBSTRUCTION [None]
  - PNEUMOTHORAX [None]
  - LYMPHADENOPATHY [None]
  - DYSSTASIA [None]
  - TRAUMATIC FRACTURE [None]
  - ATAXIA [None]
  - VERTIGO [None]
  - DYSKINESIA [None]
  - APHASIA [None]
  - URINARY INCONTINENCE [None]
  - PULMONARY EMBOLISM [None]
  - HYPOAESTHESIA [None]
  - TENDINOUS CONTRACTURE [None]
  - SPINAL COMPRESSION FRACTURE [None]
  - ABASIA [None]
  - FALL [None]
  - HYPONATRAEMIA [None]
  - INTERVERTEBRAL DISC DEGENERATION [None]
  - CEREBRAL ATROPHY [None]
  - NOCTURIA [None]
  - DIARRHOEA [None]
  - PNEUMONIA [None]
  - SERRATIA TEST POSITIVE [None]
  - PERONEAL NERVE PALSY [None]
  - REFUSAL OF TREATMENT BY PATIENT [None]
  - CARPAL TUNNEL SYNDROME [None]
  - TRANSIENT ISCHAEMIC ATTACK [None]
  - PARKINSON'S DISEASE [None]
  - SINUSITIS [None]
  - AMNESIA [None]
  - NEUROPATHY PERIPHERAL [None]
  - HIATUS HERNIA [None]
  - ANAEMIA POSTOPERATIVE [None]
  - RESTLESS LEGS SYNDROME [None]
  - ARTHRITIS [None]
  - SENILE OSTEOPOROSIS [None]
  - FAMILY STRESS [None]
  - RIB FRACTURE [None]
  - HYPERLIPIDAEMIA [None]
  - PARKINSONISM [None]
  - OESOPHAGEAL DYSPLASIA [None]
  - GLAUCOMA [None]
  - CEREBRAL ISCHAEMIA [None]
  - FAECAL INCONTINENCE [None]
  - OSTEOARTHRITIS [None]
  - ANXIETY [None]
  - COUGH [None]
  - MUSCULAR WEAKNESS [None]
  - INAPPROPRIATE ANTIDIURETIC HORMONE SECRETION [None]
  - INSULIN-REQUIRING TYPE 2 DIABETES MELLITUS [None]
  - LUMBAR SPINAL STENOSIS [None]
  - STRESS [None]
  - PROSTATE CANCER [None]
  - DEMENTIA ALZHEIMER'S TYPE [None]
  - ANHEDONIA [None]
  - LUMBAR RADICULOPATHY [None]
  - GASTROOESOPHAGEAL REFLUX DISEASE [None]
  - WEIGHT DECREASED [None]
  - EXTRAPYRAMIDAL DISORDER [None]
  - DEPRESSION [None]
  - NERVOUSNESS [None]
  - HYPERTENSION [None]
  - CHRONIC OBSTRUCTIVE PULMONARY DISEASE [None]
  - HAEMORRHAGIC ANAEMIA [None]
  - DIZZINESS [None]
  - WALKING AID USER [None]
